FAERS Safety Report 8762955 (Version 1)
Quarter: 2012Q4

REPORT INFORMATION
  Report Type: Spontaneous
  Country: US (occurrence: None)
  Receive Date: 20120831
  Receipt Date: 20120831
  Transmission Date: 20130627
  Serious: Yes (Other)
  Sender: FDA-Public Use
  Company Number: None

PATIENT
  Age: 74 Year
  Sex: Female
  Weight: 86.18 kg

DRUGS (3)
  1. SYMBICORT [Suspect]
     Dates: start: 20120806, end: 20120808
  2. BUDESONIDE [Suspect]
     Dosage: budesonide 2x2 16.0 mcg
  3. FORMOTEROL [Suspect]
     Dosage: formoterol 2x2 4.5 mcg

REACTIONS (6)
  - Dyspepsia [None]
  - Haemorrhoidal haemorrhage [None]
  - Rash [None]
  - Sunburn [None]
  - Oedema peripheral [None]
  - Swelling [None]
